FAERS Safety Report 14246263 (Version 1)
Quarter: 2017Q4

REPORT INFORMATION
  Report Type: Report from Study
  Country: FR (occurrence: FR)
  Receive Date: 20171204
  Receipt Date: 20171204
  Transmission Date: 20180321
  Serious: Yes (Hospitalization)
  Sender: FDA-Public Use
  Company Number: FR-ROCHE-1476904

PATIENT
  Age: 39 Year
  Sex: Female
  Weight: 43 kg

DRUGS (4)
  1. PLAQUENIL [Concomitant]
     Active Substance: HYDROXYCHLOROQUINE SULFATE
     Route: 065
     Dates: end: 20111012
  2. IMMUNOGLOBULIN G [Concomitant]
     Active Substance: HUMAN IMMUNOGLOBULIN G
     Route: 042
  3. RITUXIMAB. [Suspect]
     Active Substance: RITUXIMAB
     Indication: IMMUNE THROMBOCYTOPENIC PURPURA
     Dosage: FREQUNECY 1, LAST DOSE PRIOR TO SAE 13/AUG/2010
     Route: 042
     Dates: start: 20100723
  4. SOLONE [Concomitant]
     Active Substance: PREDNISOLONE

REACTIONS (4)
  - Off label use [Unknown]
  - Pneumonia [Recovered/Resolved]
  - Intentional product use issue [Unknown]
  - Lung adenocarcinoma [Unknown]

NARRATIVE: CASE EVENT DATE: 201304
